FAERS Safety Report 8841348 (Version 1)
Quarter: 2012Q4

REPORT INFORMATION
  Report Type: 
  Country: US (occurrence: US)
  Receive Date: 20121015
  Receipt Date: 20121015
  Transmission Date: 20130627
  Serious: Yes (Other)
  Sender: FDA-Public Use
  Company Number: US-PFIZER INC-HQWYE094019OCT05

PATIENT
  Age: 59 Year
  Sex: Female
  Weight: 57 kg

DRUGS (9)
  1. PREMARIN [Suspect]
     Indication: HORMONE REPLACEMENT THERAPY
     Dosage: 1.25 mg, UNK
     Route: 048
     Dates: start: 1989, end: 200207
  2. PROVERA [Suspect]
     Indication: HORMONE REPLACEMENT THERAPY
     Dosage: 5 mg, UNK
     Route: 048
     Dates: start: 1989, end: 200207
  3. MEDROXYPROGESTERONE ACETATE [Suspect]
     Indication: HORMONE REPLACEMENT THERAPY
     Dosage: 5 mg, UNK
     Dates: start: 1989, end: 200207
  4. CYCRIN [Suspect]
     Indication: HORMONE REPLACEMENT THERAPY
     Dosage: 5 mg, UNK
     Route: 048
     Dates: start: 1989, end: 200207
  5. MEDROXYPROGESTERONE ACETATE [Suspect]
     Indication: HORMONE REPLACEMENT THERAPY
     Dosage: 5 mg, UNK
     Dates: start: 1989, end: 200207
  6. CELEXA [Concomitant]
     Indication: DEPRESSION
     Dosage: UNK
     Dates: start: 1995, end: 20080314
  7. ALPRAZOLAM [Concomitant]
     Indication: SLEEP DISORDER
     Dosage: UNK
     Dates: start: 1996, end: 2007
  8. ACTONEL [Concomitant]
     Indication: OSTEOPOROSIS
     Dosage: UNK
  9. CALTRATE [Concomitant]
     Indication: OSTEOPOROSIS
     Dosage: UNK
     Dates: start: 2000

REACTIONS (1)
  - Breast cancer female [Unknown]
